FAERS Safety Report 10255184 (Version 1)
Quarter: 2014Q2

REPORT INFORMATION
  Report Type: Spontaneous
  Country: CA (occurrence: CA)
  Receive Date: 20140624
  Receipt Date: 20140624
  Transmission Date: 20141212
  Serious: Yes (Death)
  Sender: FDA-Public Use
  Company Number: PHHY2014CA073160

PATIENT
  Age: 25 Year
  Sex: Male

DRUGS (4)
  1. RHOVANE [Suspect]
  2. DIAZEPAM [Suspect]
  3. OXYCODONE HYDROCHLORIDE [Suspect]
  4. CLONIDINE [Suspect]

REACTIONS (4)
  - Drug dependence [Fatal]
  - Overdose [Fatal]
  - Substance abuse [Fatal]
  - Suicidal behaviour [Fatal]
